FAERS Safety Report 19656905 (Version 1)
Quarter: 2021Q3

REPORT INFORMATION
  Report Type: Spontaneous
  Country: US (occurrence: US)
  Receive Date: 20210804
  Receipt Date: 20210804
  Transmission Date: 20211014
  Serious: Yes (Hospitalization, Other)
  Sender: FDA-Public Use
  Company Number: US-GLAXOSMITHKLINE-US2021162834

PATIENT
  Age: 73 Year
  Sex: Male

DRUGS (1)
  1. FLONASE ALLERGY RELIEF [Suspect]
     Active Substance: FLUTICASONE PROPIONATE
     Indication: NASAL CONGESTION
     Dosage: UNK,COUPLE DOSES IN EACH NOSTRIL

REACTIONS (11)
  - Swelling face [Recovered/Resolved]
  - Facial paralysis [Recovered/Resolved]
  - Concomitant disease aggravated [Recovered/Resolved]
  - Expired product administered [Unknown]
  - Hypoaesthesia [Recovered/Resolved]
  - Product use issue [Unknown]
  - Tremor [Recovered/Resolved]
  - Drug dependence [Unknown]
  - Gait disturbance [Recovered/Resolved]
  - Hypoaesthesia oral [Recovered/Resolved]
  - Drug ineffective [Unknown]

NARRATIVE: CASE EVENT DATE: 20210419
